FAERS Safety Report 21176945 (Version 3)
Quarter: 2022Q4

REPORT INFORMATION
  Report Type: Report from Study
  Country: US (occurrence: US)
  Receive Date: 20220805
  Receipt Date: 20221006
  Transmission Date: 20230113
  Serious: Yes (Hospitalization)
  Sender: FDA-Public Use
  Company Number: US-JNJFOC-20220730651

PATIENT
  Age: 67 Year

DRUGS (1)
  1. MACITENTAN [Suspect]
     Active Substance: MACITENTAN
     Indication: Pulmonary arterial hypertension
     Route: 048
     Dates: start: 202205

REACTIONS (19)
  - Renal disorder [Recovered/Resolved]
  - Oxygen saturation decreased [Not Recovered/Not Resolved]
  - Vomiting [Recovered/Resolved]
  - Blood magnesium decreased [Unknown]
  - Blood potassium decreased [Recovered/Resolved]
  - Asthenia [Recovered/Resolved]
  - Somnolence [Recovered/Resolved]
  - Epistaxis [Recovered/Resolved]
  - Product dose omission issue [Unknown]
  - Gout [Not Recovered/Not Resolved]
  - Peripheral swelling [Not Recovered/Not Resolved]
  - Pain in extremity [Not Recovered/Not Resolved]
  - Musculoskeletal pain [Not Recovered/Not Resolved]
  - Chills [Not Recovered/Not Resolved]
  - Insomnia [Unknown]
  - Dyspnoea [Recovered/Resolved]
  - Product quality issue [Unknown]
  - Cough [Not Recovered/Not Resolved]
  - Headache [Not Recovered/Not Resolved]

NARRATIVE: CASE EVENT DATE: 20220601
